FAERS Safety Report 14672277 (Version 3)
Quarter: 2018Q2

REPORT INFORMATION
  Report Type: Spontaneous
  Country: CA (occurrence: CA)
  Receive Date: 20180323
  Receipt Date: 20180608
  Transmission Date: 20180711
  Serious: Yes (Death, Hospitalization)
  Sender: FDA-Public Use
  Company Number: CA-TEVA-2018-CA-872393

PATIENT
  Age: 69 Year
  Sex: Male

DRUGS (1)
  1. TEVA-SPIRONOLACTONE [Suspect]
     Active Substance: SPIRONOLACTONE
     Indication: PRODUCT USED FOR UNKNOWN INDICATION
     Dosage: 50 MILLIGRAM DAILY; TEVA-SPIRONOLACTONE 25MG
     Route: 048
     Dates: start: 201710, end: 201710

REACTIONS (6)
  - Death [Fatal]
  - Rash pustular [Unknown]
  - Product quality issue [Unknown]
  - Malaise [Unknown]
  - General physical health deterioration [Unknown]
  - Organ failure [Unknown]

NARRATIVE: CASE EVENT DATE: 201710
